FAERS Safety Report 8780582 (Version 3)
Quarter: 2012Q4

REPORT INFORMATION
  Report Type: 
  Country: US (occurrence: US)
  Receive Date: 20120913
  Receipt Date: 20121023
  Transmission Date: 20130627
  Serious: No
  Sender: FDA-Public Use
  Company Number: US-PFIZER INC-2012221110

PATIENT
  Age: 24 Year
  Sex: Female
  Weight: 40.82 kg

DRUGS (1)
  1. EPIPEN [Suspect]
     Indication: ANAPHYLACTIC REACTION
     Dosage: 1 dose as needed
     Route: 030
     Dates: start: 20120906

REACTIONS (2)
  - Drug administration error [Recovered/Resolved with Sequelae]
  - Injection site pain [Recovered/Resolved with Sequelae]
